FAERS Safety Report 14207552 (Version 1)
Quarter: 2017Q4

REPORT INFORMATION
  Report Type: Spontaneous
  Country: US (occurrence: None)
  Receive Date: 20171120
  Receipt Date: 20171120
  Transmission Date: 20180321
  Serious: Yes (Other)
  Sender: FDA-Public Use
  Company Number: None

PATIENT
  Sex: Female
  Weight: 76.66 kg

DRUGS (6)
  1. FORTEO [Suspect]
     Active Substance: TERIPARATIDE
     Indication: OESOPHAGITIS
     Route: 058
     Dates: start: 201701
  2. FORTEO [Suspect]
     Active Substance: TERIPARATIDE
     Indication: CHRONIC KIDNEY DISEASE
     Route: 058
     Dates: start: 201701
  3. FORTEO [Suspect]
     Active Substance: TERIPARATIDE
     Indication: GASTROOESOPHAGEAL REFLUX DISEASE
     Route: 058
     Dates: start: 201701
  4. FORTEO [Suspect]
     Active Substance: TERIPARATIDE
     Indication: OSTEOPOROSIS
     Route: 058
     Dates: start: 201701
  5. FORTEO [Suspect]
     Active Substance: TERIPARATIDE
     Indication: PATHOLOGICAL FRACTURE
     Route: 058
     Dates: start: 201701
  6. FORTEO [Suspect]
     Active Substance: TERIPARATIDE
     Indication: OSTEOPOROTIC FRACTURE
     Route: 058
     Dates: start: 201701

REACTIONS (3)
  - Respiratory disorder [None]
  - Pulmonary mass [None]
  - Laryngitis [None]
